FAERS Safety Report 8774319 (Version 3)
Quarter: 2012Q4

REPORT INFORMATION
  Report Type: Report from Study
  Country: CA (occurrence: CA)
  Receive Date: 20120907
  Receipt Date: 20121128
  Transmission Date: 20130627
  Serious: Yes (Death, Life-Threatening, Other)
  Sender: FDA-Public Use
  Company Number: CA-MERCK-2012SP019468

PATIENT
  Age: 44 Year
  Sex: Female
  Weight: 73.6 kg

DRUGS (40)
  1. POSACONAZOLE [Suspect]
     Indication: ANTIFUNGAL PROPHYLAXIS
     Dosage: 300 mg, q12h
     Route: 042
     Dates: start: 20120330, end: 20120330
  2. POSACONAZOLE [Suspect]
     Dosage: 300 mg, QD
     Route: 042
     Dates: start: 20120331, end: 20120403
  3. POSACONAZOLE [Suspect]
     Dosage: 200 mg, TID
     Route: 048
     Dates: start: 20120404, end: 20120405
  4. POSACONAZOLE [Suspect]
     Dosage: 300 mg, QD
     Route: 042
     Dates: start: 20120406, end: 20120407
  5. ALLOPURINOL [Concomitant]
     Indication: TUMOUR LYSIS SYNDROME
     Dosage: EVERY 12 HOURS, PROPHYLAXIS
     Route: 048
     Dates: start: 20120323, end: 20120412
  6. DEXAMETHASONE [Concomitant]
     Indication: NAUSEA
     Dosage: EVERY 12 HOURS, PROPHYLAXIS
     Route: 041
     Dates: start: 20120327, end: 20120330
  7. KYTRIL [Concomitant]
     Indication: NAUSEA
     Dosage: PROPHYLAXIS
     Route: 041
     Dates: start: 20120327, end: 20120403
  8. METOCLOPRAMIDE [Concomitant]
     Indication: NEUTROPENIC COLITIS
     Dosage: UNK UNK, PRN
     Route: 041
     Dates: start: 20120406, end: 20120411
  9. DIMENHYDRINATE [Concomitant]
     Indication: NEUTROPENIC COLITIS
     Dosage: UNK UNK, PRN
     Route: 041
     Dates: start: 20120407, end: 20120408
  10. DAUNORUBICIN [Concomitant]
     Indication: ACUTE MYELOID LEUKAEMIA
     Dosage: UNK UNK, QD
     Route: 041
     Dates: start: 20120327, end: 20120329
  11. CYTARABINE [Concomitant]
     Indication: ACUTE MYELOID LEUKAEMIA
     Dosage: UNK UNK, QD
     Route: 041
     Dates: start: 20120327, end: 20120403
  12. PIPERACILLIN SODIUM (+) TAZOBACTAM SODIUM [Concomitant]
     Indication: PYREXIA
     Dosage: UNK UNK, q6h
     Route: 041
     Dates: start: 20120406, end: 20120410
  13. RANITIDINE [Concomitant]
     Indication: GASTRITIS PROPHYLAXIS
     Dosage: EVERY 12 HOURS
     Route: 048
     Dates: start: 20120323, end: 20120407
  14. VALACYCLOVIR HYDROCHLORIDE [Concomitant]
     Indication: ANTIVIRAL PROPHYLAXIS
     Dosage: UNK UNK, QD
     Route: 048
     Dates: start: 20120323, end: 20120407
  15. STATEX (MORPHINE SULFATE) [Concomitant]
     Indication: ORAL PAIN
     Dosage: UNK UNK, PRN
     Route: 048
     Dates: start: 20120323, end: 20120327
  16. FLUTICASONE [Concomitant]
     Indication: CHEST PAIN
     Dosage: EVERY 12 HOURS
     Route: 055
     Dates: start: 201202, end: 20120409
  17. ZOPICLONE [Concomitant]
     Indication: PROPHYLAXIS
     Dosage: UNK UNK, hs
     Route: 048
     Dates: start: 20120324, end: 20120408
  18. HYDROXYUREA [Concomitant]
     Indication: ACUTE MYELOID LEUKAEMIA
     Dosage: EVERY 12 HOURS
     Route: 048
     Dates: start: 20120323, end: 20120326
  19. NICOTINE [Concomitant]
     Indication: EX-TOBACCO USER
     Route: 062
     Dates: start: 20120325, end: 20120416
  20. CEFAZOLIN [Concomitant]
     Indication: CELLULITIS
     Dosage: UNK UNK, q8h
     Route: 041
     Dates: start: 20120325, end: 20120407
  21. PAROXETINE [Concomitant]
     Indication: DEPRESSION
     Dosage: UNK UNK, hs
     Route: 048
     Dates: start: 2009, end: 20120411
  22. COLCHICINE [Concomitant]
     Indication: PERICARDITIS
     Dosage: EVERY 12 HOURS
     Route: 048
     Dates: start: 201203, end: 20120325
  23. MK-0805 [Concomitant]
     Indication: PROPHYLAXIS
     Dosage: UNK UNK, PRN
     Route: 040
     Dates: start: 20120325, end: 20120402
  24. DOCUSATE SODIUM [Concomitant]
     Indication: ABDOMINAL PAIN
     Dosage: UNK UNK, ONCE
     Route: 048
     Dates: start: 20120327, end: 20120327
  25. SENNA [Concomitant]
     Indication: ABDOMINAL PAIN
     Dosage: UNK UNK, ONCE
     Route: 048
     Dates: start: 20120327, end: 20120327
  26. METHOTREXATE [Concomitant]
     Indication: ACUTE MYELOID LEUKAEMIA
     Dosage: UNK UNK, ONCE
     Route: 037
     Dates: start: 20120403, end: 20120403
  27. RHO(D) IMMUNE GLOBULIN [Concomitant]
     Indication: PROPHYLAXIS
     Dosage: UNK UNK, ONCE
     Route: 042
     Dates: start: 20120402, end: 20120402
  28. ACTIVASE [Concomitant]
     Indication: DEVICE OCCLUSION
     Dosage: UNK UNK, ONCE
     Dates: start: 20120402, end: 20120402
  29. LIDOCAINE [Concomitant]
     Indication: CENTRAL VENOUS CATHETERISATION
     Dosage: UNK UNK, ONCE
     Route: 058
     Dates: start: 20120327, end: 20120327
  30. HEPARIN [Concomitant]
     Indication: PRODUCT USED FOR UNKNOWN INDICATION
     Dosage: UNK UNK, ONCE
     Dates: start: 20120327, end: 20120327
  31. STATEX (MORPHINE SULFATE) [Concomitant]
     Indication: ABDOMINAL PAIN
     Dosage: UNK UNK, PRN
     Route: 048
     Dates: start: 20120405, end: 20120406
  32. TRANEXAMIC ACID [Concomitant]
     Indication: MENSTRUAL DISCOMFORT
     Dosage: UNK UNK, TID
     Route: 048
     Dates: start: 20120405, end: 20120407
  33. TYLENOL [Concomitant]
     Indication: PYREXIA
     Dosage: UNK UNK, PRN
     Route: 048
     Dates: start: 20120406, end: 20120411
  34. FAMOTIDINE [Concomitant]
     Indication: PROPHYLAXIS
     Dosage: EVERY 12 HOURS
     Route: 041
     Dates: start: 20120407, end: 20120411
  35. ACYCLOVIR [Concomitant]
     Indication: INFECTION PROPHYLAXIS
     Dosage: EVERY 12 HOURS
     Route: 041
     Dates: start: 20120408, end: 20120419
  36. CASPOFUNGIN ACETATE [Concomitant]
     Indication: PROPHYLAXIS
     Dosage: UNK UNK, QD
     Route: 041
     Dates: start: 20120408, end: 20120411
  37. K-DUR [Concomitant]
     Indication: HYPOKALAEMIA
     Dosage: UNK UNK, PRN
     Route: 041
     Dates: start: 20120408, end: 20120414
  38. CHLORHEXIDINE GLUCONATE [Concomitant]
     Indication: GINGIVAL PAIN
     Dosage: UNK UNK, PRN
     Dates: start: 20120317, end: 20120324
  39. METRONIDAZOLE [Concomitant]
     Indication: GINGIVAL PAIN
     Dosage: UNK UNK, TID
     Route: 048
     Dates: start: 20120317, end: 20120324
  40. ALBUTEROL [Concomitant]
     Indication: CHEST PAIN
     Dosage: UNK UNK, PRN
     Route: 055
     Dates: start: 201202, end: 20120409

REACTIONS (7)
  - Acute respiratory distress syndrome [Fatal]
  - Hyperbilirubinaemia [Not Recovered/Not Resolved]
  - Aspartate aminotransferase increased [Not Recovered/Not Resolved]
  - Alanine aminotransferase increased [Not Recovered/Not Resolved]
  - Blood alkaline phosphatase increased [Not Recovered/Not Resolved]
  - Sepsis [Not Recovered/Not Resolved]
  - Neutropenic colitis [Not Recovered/Not Resolved]
